FAERS Safety Report 12142256 (Version 4)
Quarter: 2016Q2

REPORT INFORMATION
  Report Type: Spontaneous
  Country: US (occurrence: US)
  Receive Date: 20160303
  Receipt Date: 20160523
  Transmission Date: 20160815
  Serious: Yes (Other)
  Sender: FDA-Public Use
  Company Number: US-BAUSCH-BL-2016-004910

PATIENT
  Age: 1 Year
  Sex: Female
  Weight: 15.44 kg

DRUGS (4)
  1. DIAZGEL [Suspect]
     Active Substance: DIAZEPAM
     Indication: SEIZURE
     Route: 065
  2. DIASTAT [Suspect]
     Active Substance: DIAZEPAM
     Indication: STATUS EPILEPTICUS
     Dosage: AS NECESSARY
     Route: 065
     Dates: start: 20141117
  3. DIAZGEL [Suspect]
     Active Substance: DIAZEPAM
     Route: 065
  4. ATIVAN [Suspect]
     Active Substance: LORAZEPAM
     Indication: PRODUCT USED FOR UNKNOWN INDICATION
     Dosage: FOUR DOSES OF 2MG TOTAL
     Route: 042

REACTIONS (3)
  - Respiratory arrest [Recovered/Resolved]
  - Respiratory failure [Unknown]
  - Lethargy [Recovered/Resolved]

NARRATIVE: CASE EVENT DATE: 20141117
